FAERS Safety Report 14214665 (Version 1)
Quarter: 2017Q4

REPORT INFORMATION
  Report Type: Spontaneous
  Country: US (occurrence: US)
  Receive Date: 20171122
  Receipt Date: 20171122
  Transmission Date: 20180321
  Serious: No
  Sender: FDA-Public Use
  Company Number: US-ELI_LILLY_AND_COMPANY-US201711008524

PATIENT
  Age: 23 Year
  Sex: Female

DRUGS (6)
  1. LARTRUVO [Suspect]
     Active Substance: OLARATUMAB
     Indication: SOFT TISSUE SARCOMA
     Dosage: UNK
     Route: 065
     Dates: start: 20171109
  2. DOXIL [Concomitant]
     Active Substance: DOXORUBICIN HYDROCHLORIDE
     Indication: SOFT TISSUE SARCOMA
     Dosage: UNK
     Route: 065
     Dates: start: 20171109
  3. METHADONE [Concomitant]
     Active Substance: METHADONE HYDROCHLORIDE
     Dosage: 7.5 MG, EACH MORNING
     Dates: start: 20171114
  4. LARTRUVO [Suspect]
     Active Substance: OLARATUMAB
     Dosage: UNK
     Route: 065
     Dates: start: 20171116
  5. METHADONE [Concomitant]
     Active Substance: METHADONE HYDROCHLORIDE
     Dosage: 10 MG, EACH EVENING
  6. METHADONE [Concomitant]
     Active Substance: METHADONE HYDROCHLORIDE
     Indication: PAIN
     Dosage: 7.5 MG, BID

REACTIONS (2)
  - Neuralgia [Not Recovered/Not Resolved]
  - Insomnia [Not Recovered/Not Resolved]
